FAERS Safety Report 8124105-7 (Version None)
Quarter: 2012Q1

REPORT INFORMATION
  Report Type: 
  Country: None (occurrence: None)
  Receive Date: 20120209
  Receipt Date: 20120206
  Transmission Date: 20120608
  Serious: Yes (Other)
  Sender: FDA-Public Use
  Company Number: US-JNJFOC-20110408245

PATIENT
  Sex: Female

DRUGS (1)
  1. LEVAQUIN [Suspect]
     Indication: INFECTION
     Route: 048
     Dates: start: 20051001, end: 20051101

REACTIONS (7)
  - PLANTAR FASCIITIS [None]
  - BACK PAIN [None]
  - LICHEN PLANUS [None]
  - ARTHRALGIA [None]
  - SKIN DISORDER [None]
  - PAIN IN EXTREMITY [None]
  - THERMAL BURN [None]
